FAERS Safety Report 8043993-6 (Version None)
Quarter: 2012Q1

REPORT INFORMATION
  Report Type: 
  Country: None (occurrence: None)
  Receive Date: 20120113
  Receipt Date: 20120106
  Transmission Date: 20120608
  Serious: Yes (Hospitalization)
  Sender: FDA-Public Use
  Company Number: US-SP-2012-00343

PATIENT
  Age: 73 Year
  Sex: Male

DRUGS (2)
  1. THERACYS [Suspect]
     Indication: BLADDER CANCER
     Dosage: MAINTENANCE TREATMENT
     Route: 043
  2. LISINOPRIL [Concomitant]

REACTIONS (3)
  - INFLUENZA LIKE ILLNESS [None]
  - BOVINE TUBERCULOSIS [None]
  - PYREXIA [None]
